FAERS Safety Report 26038891 (Version 3)
Quarter: 2025Q4

REPORT INFORMATION
  Report Type: Spontaneous
  Country: EU (occurrence: EU)
  Receive Date: 20251113
  Receipt Date: 20251205
  Transmission Date: 20260117
  Serious: Yes (Other)
  Sender: AUROBINDO
  Company Number: EU-002147023-NVSC2024CZ229274

PATIENT
  Sex: Female

DRUGS (27)
  1. IMATINIB [Suspect]
     Active Substance: IMATINIB
     Indication: Chronic myeloid leukaemia
     Dosage: 400 MILLIGRAM, ONCE A DAY (FIRST LINE TREATMENT)
     Route: 065
  2. IMATINIB [Suspect]
     Active Substance: IMATINIB
     Dosage: 300 MILLIGRAM, ONCE A DAY(FIRST LINE TREATMENT)
     Route: 065
     Dates: start: 201205
  3. IMATINIB [Suspect]
     Active Substance: IMATINIB
     Dosage: 200 MILLIGRAM, ONCE A DAY(FIRST LINE TREATMENT)
     Route: 065
  4. IMATINIB [Suspect]
     Active Substance: IMATINIB
     Dosage: UNK
     Route: 065
  5. IMATINIB [Suspect]
     Active Substance: IMATINIB
     Dosage: UNK
     Route: 065
  6. IMATINIB [Suspect]
     Active Substance: IMATINIB
     Dosage: UNK
     Route: 065
  7. IMATINIB [Suspect]
     Active Substance: IMATINIB
     Dosage: 600 MILLIGRAM
     Route: 065
  8. IMATINIB [Suspect]
     Active Substance: IMATINIB
     Dosage: UNK MILLIGRAM
     Route: 065
  9. NILOTINIB [Suspect]
     Active Substance: NILOTINIB
     Indication: Chronic myeloid leukaemia
     Dosage: 450 MILLIGRAM, ONCE A DAY(SECOND-LINE TREATMENT)
     Route: 065
  10. NILOTINIB [Suspect]
     Active Substance: NILOTINIB
     Dosage: 300 MILLIGRAM, ONCE A DAY(SECOND-LINE TREATMENT)
     Route: 065
  11. NILOTINIB [Suspect]
     Active Substance: NILOTINIB
     Dosage: 450 MILLIGRAM, ONCE A DAY(SECOND-LINE TREATMENT)
     Route: 065
  12. NILOTINIB [Suspect]
     Active Substance: NILOTINIB
     Dosage: 300 MILLIGRAM, ONCE A DAY(SECOND-LINE TREATMENT)
     Route: 065
     Dates: start: 201104
  13. NILOTINIB [Suspect]
     Active Substance: NILOTINIB
     Dosage: UNK
     Route: 065
  14. NILOTINIB [Suspect]
     Active Substance: NILOTINIB
     Dosage: 400 MILLIGRAM, ONCE A DAY
     Route: 065
     Dates: start: 202005
  15. NILOTINIB [Suspect]
     Active Substance: NILOTINIB
     Dosage: 800 MILLIGRAM, ONCE A DAY
     Route: 065
  16. NILOTINIB [Suspect]
     Active Substance: NILOTINIB
     Dosage: 400 MILLIGRAM, ONCE A DAY
     Route: 065
     Dates: end: 202401
  17. ASCIMINIB [Suspect]
     Active Substance: ASCIMINIB
     Indication: Chronic myeloid leukaemia
     Dosage: 80 MILLIGRAM, ONCE A DAY (FOURTH-LINE TREATMENT)
     Route: 065
     Dates: start: 202308
  18. BOSUTINIB [Suspect]
     Active Substance: BOSUTINIB
     Indication: Chronic myeloid leukaemia
     Dosage: 300 MILLIGRAM, ONCE A DAY THIRD LINE TREATMENT
     Route: 065
     Dates: start: 202102
  19. BOSUTINIB [Suspect]
     Active Substance: BOSUTINIB
     Dosage: 200 MILLIGRAM
     Route: 065
  20. BOSUTINIB [Suspect]
     Active Substance: BOSUTINIB
     Dosage: 100 MILLIGRAM
     Route: 065
  21. BOSUTINIB [Suspect]
     Active Substance: BOSUTINIB
     Dosage: 300 MILLIGRAM
     Route: 065
  22. DASATINIB [Suspect]
     Active Substance: DASATINIB
     Indication: Chronic myeloid leukaemia
     Dosage: 90 MILLIGRAM, ONCE A DAY
     Route: 065
     Dates: start: 201306, end: 201602
  23. DASATINIB [Suspect]
     Active Substance: DASATINIB
     Dosage: 70 MILLIGRAM, ONCE A DAY
     Route: 065
     Dates: start: 201605, end: 201905
  24. DASATINIB [Suspect]
     Active Substance: DASATINIB
     Dosage: 70 MILLIGRAM, ONCE A DAY
     Route: 065
     Dates: end: 202005
  25. PONATINIB [Suspect]
     Active Substance: PONATINIB
     Indication: Chronic myeloid leukaemia
     Dosage: 15 MILLIGRAM, ONCE A DAY
     Route: 065
     Dates: start: 202401
  26. PONATINIB [Suspect]
     Active Substance: PONATINIB
     Dosage: 45 MILLIGRAM, ONCE A DAY
     Route: 065
     Dates: start: 202402
  27. PONATINIB [Suspect]
     Active Substance: PONATINIB
     Dosage: UNK
     Route: 065

REACTIONS (27)
  - Neuropathy peripheral [Recovering/Resolving]
  - Dyspnoea [Recovering/Resolving]
  - Arthralgia [Recovering/Resolving]
  - Nausea [Recovering/Resolving]
  - Chronic myeloid leukaemia [Unknown]
  - Peritonitis [Unknown]
  - Large intestine perforation [Recovered/Resolved]
  - Haematotoxicity [Recovered/Resolved]
  - Thrombocytopenia [Recovered/Resolved]
  - Ileus [Recovered/Resolved]
  - Pleural effusion [Recovered/Resolved]
  - Diarrhoea [Recovered/Resolved]
  - Vaginal haemorrhage [Recovered/Resolved]
  - Condition aggravated [Unknown]
  - Vomiting [Recovering/Resolving]
  - Gastrointestinal tract irritation [Recovered/Resolved]
  - Dermatitis allergic [Unknown]
  - Hypertension [Recovered/Resolved]
  - Peripheral swelling [Recovering/Resolving]
  - Myalgia [Unknown]
  - Obstructive airways disorder [Recovering/Resolving]
  - Muscle spasms [Recovered/Resolved]
  - Cytogenetic analysis abnormal [Recovering/Resolving]
  - Abdominal pain [Recovered/Resolved]
  - Pruritus [Recovering/Resolving]
  - Treatment failure [Unknown]
  - Therapeutic response shortened [Unknown]

NARRATIVE: CASE EVENT DATE: 20060101
